FAERS Safety Report 5982960-0 (Version None)
Quarter: 2008Q4

REPORT INFORMATION
  Report Type: 
  Country: None (occurrence: None)
  Receive Date: 20081208
  Receipt Date: 20081205
  Transmission Date: 20090506
  Serious: Yes (Death)
  Sender: FDA-Public Use
  Company Number: US-ASTRAZENECA-2008UW27042

PATIENT
  Age: 64 Year
  Sex: Male

DRUGS (2)
  1. NEXIUM [Suspect]
     Indication: PROPHYLAXIS
     Dosage: ONCE A DAY
     Route: 048
  2. MULTIPLE MEDICATIONS [Concomitant]

REACTIONS (1)
  - LUNG NEOPLASM MALIGNANT [None]
